FAERS Safety Report 9377380 (Version 10)
Quarter: 2018Q1

REPORT INFORMATION
  Report Type: Spontaneous
  Country: US (occurrence: US)
  Receive Date: 20130701
  Receipt Date: 20180105
  Transmission Date: 20180509
  Serious: Yes (Other)
  Sender: FDA-Public Use
  Company Number: US-PFIZER INC-2013190826

PATIENT
  Age: 47 Year
  Sex: Female
  Weight: 80 kg

DRUGS (9)
  1. PREMARIN [Suspect]
     Active Substance: ESTROGENS, CONJUGATED
     Dosage: 0.625 G, UNK
     Dates: start: 2013, end: 201306
  2. TAZAROTENE. [Concomitant]
     Active Substance: TAZAROTENE
     Dosage: 0.1 %, UNK
  3. CLINDAMYCIN-BENZOYL PER GEL [Concomitant]
     Dosage: APPLY TO FACE DAILY IN AM AFTER CLEANSING
  4. FISH OIL [Concomitant]
     Active Substance: FISH OIL
     Dosage: 2 G, DAILY
     Route: 048
     Dates: end: 2012
  5. PREMARIN [Suspect]
     Active Substance: ESTROGENS, CONJUGATED
     Indication: ATROPHIC VULVOVAGINITIS
     Dosage: UNK
     Route: 067
     Dates: start: 2012, end: 2012
  6. ESTRADIOL. [Concomitant]
     Active Substance: ESTRADIOL
     Dosage: 1 DF, 2X/WEEK
     Route: 067
  7. IBUPROFEN. [Concomitant]
     Active Substance: IBUPROFEN
     Indication: LIGAMENT SPRAIN
     Dosage: 800 MG, 2X/DAY, AS NEEDED
     Route: 048
     Dates: start: 20121218
  8. PREMARIN [Suspect]
     Active Substance: ESTROGENS, CONJUGATED
     Indication: VULVOVAGINAL DRYNESS
     Dosage: 1 G, DAILY, FOR 2 WEEKS
     Route: 067
     Dates: start: 20130222
  9. PREMARIN [Suspect]
     Active Substance: ESTROGENS, CONJUGATED
     Indication: HORMONE REPLACEMENT THERAPY
     Dosage: 1 G, WEEKLY
     Route: 067
     Dates: end: 20130419

REACTIONS (25)
  - Hepatic lesion [Unknown]
  - Hepatic haematoma [Not Recovered/Not Resolved]
  - Abdominal pain [Unknown]
  - Ear pain [Not Recovered/Not Resolved]
  - Pain [Recovering/Resolving]
  - Postmenopausal haemorrhage [Recovered/Resolved]
  - Abdominal pain upper [Unknown]
  - Pelvic pain [Unknown]
  - Pain in extremity [Not Recovered/Not Resolved]
  - Haematuria [Unknown]
  - Hepatic mass [Unknown]
  - Pulmonary haematoma [Not Recovered/Not Resolved]
  - Proteinuria [Not Recovered/Not Resolved]
  - Visual impairment [Not Recovered/Not Resolved]
  - Liver disorder [Not Recovered/Not Resolved]
  - Hypertension [Unknown]
  - Eye pain [Unknown]
  - Headache [Unknown]
  - Muscular weakness [Unknown]
  - Haemangioma of liver [Unknown]
  - Thrombosis [Not Recovered/Not Resolved]
  - Alopecia [Not Recovered/Not Resolved]
  - Nausea [Unknown]
  - Acne [Unknown]
  - Respiratory disorder [Unknown]

NARRATIVE: CASE EVENT DATE: 2012
